FAERS Safety Report 5273324-6 (Version None)
Quarter: 2007Q1

REPORT INFORMATION
  Report Type: 
  Country: None (occurrence: None)
  Receive Date: 20070319
  Receipt Date: 20070312
  Transmission Date: 20070707
  Serious: Yes (Death)
  Sender: FDA-Public Use
  Company Number: 2007SP004320

PATIENT
  Age: 80 Year
  Sex: Female

DRUGS (3)
  1. TEMODAL [Suspect]
     Indication: OLIGODENDROGLIOMA
     Dosage: 75 MG/M2;QD;PO
     Route: 048
     Dates: start: 20070110, end: 20070219
  2. BAKTAR [Concomitant]
  3. RADIOTHERAPY [Concomitant]

REACTIONS (1)
  - SEPTIC SHOCK [None]
